FAERS Safety Report 6734064-7 (Version None)
Quarter: 2010Q2

REPORT INFORMATION
  Report Type: 
  Country: None (occurrence: None)
  Receive Date: 20100520
  Receipt Date: 20100517
  Transmission Date: 20101027
  Serious: Yes (Other)
  Sender: FDA-Public Use
  Company Number: A0859984A

PATIENT
  Age: 66 Year
  Sex: Female

DRUGS (1)
  1. NICODERM CQ [Suspect]
     Indication: SMOKING CESSATION THERAPY
     Dates: start: 20100514

REACTIONS (5)
  - DRUG ADMINISTRATION ERROR [None]
  - PRURITUS [None]
  - PSORIASIS [None]
  - RASH PRURITIC [None]
  - TREATMENT NONCOMPLIANCE [None]
